FAERS Safety Report 19941018 (Version 1)
Quarter: 2021Q4

REPORT INFORMATION
  Report Type: Spontaneous
  Country: US (occurrence: US)
  Receive Date: 20211012
  Receipt Date: 20211012
  Transmission Date: 20220304
  Serious: No
  Sender: FDA-Public Use
  Company Number: US-DRREDDYS-SPO/USA/21/0142441

PATIENT
  Age: 22 Year
  Sex: Female

DRUGS (1)
  1. ZENATANE [Suspect]
     Active Substance: ISOTRETINOIN
     Indication: Product used for unknown indication
     Dosage: RMA ISSUE DATE :10 MARCH 2021 2:01:41 PM,12 APRIL 2021 2:11:11 PM,10 MAY 2021 1:34:40 PM,8 JUNE 2021

REACTIONS (1)
  - Treatment noncompliance [Unknown]
